FAERS Safety Report 9900812 (Version 2)
Quarter: 2014Q1

REPORT INFORMATION
  Report Type: Spontaneous
  Country: IT (occurrence: IT)
  Receive Date: 20140217
  Receipt Date: 20140219
  Transmission Date: 20141002
  Serious: Yes (Death)
  Sender: FDA-Public Use
  Company Number: IT-TEVA-460962ISR

PATIENT
  Age: 49 Year
  Sex: Male

DRUGS (2)
  1. VERAPAMIL [Suspect]
     Indication: CAPILLARY LEAK SYNDROME
     Route: 065
  2. THEOPHYLLINE [Suspect]
     Indication: CAPILLARY LEAK SYNDROME
     Route: 065

REACTIONS (4)
  - Hypovolaemic shock [Fatal]
  - Multi-organ failure [Fatal]
  - Hypotension [Unknown]
  - Tachycardia [Unknown]
